FAERS Safety Report 4756554-9 (Version None)
Quarter: 2005Q3

REPORT INFORMATION
  Report Type: 
  Country: None (occurrence: None)
  Receive Date: 20050830
  Receipt Date: 20050816
  Transmission Date: 20060218
  Serious: Yes (Other)
  Sender: FDA-Public Use
  Company Number: US-GLAXOSMITHKLINE-A0570361A

PATIENT
  Age: 57 Year
  Sex: Female
  Weight: 60 kg

DRUGS (7)
  1. NICORETTE (MINT) [Suspect]
     Route: 002
     Dates: start: 19880101, end: 20050701
  2. NICORETTE (MINT) [Suspect]
     Route: 002
  3. COMMIT [Suspect]
     Route: 002
  4. NICODERM CQ [Suspect]
     Indication: NICOTINE DEPENDENCE
     Route: 062
     Dates: start: 20050726
  5. LIPITOR [Concomitant]
     Dosage: 20MG PER DAY
     Route: 048
  6. DIAZIDE [Concomitant]
     Indication: HYPERTENSION
     Route: 048
  7. PRILOSEC [Concomitant]
     Dosage: 20MG PER DAY
     Route: 048

REACTIONS (11)
  - APPLICATION SITE ERYTHEMA [None]
  - APPLICATION SITE IRRITATION [None]
  - APPLICATION SITE PRURITUS [None]
  - CONFUSIONAL STATE [None]
  - DEPENDENCE [None]
  - DRUG ABUSER [None]
  - DRUG WITHDRAWAL SYNDROME [None]
  - INTENTIONAL MISUSE [None]
  - IRRITABILITY [None]
  - STOMACH DISCOMFORT [None]
  - TOOTH FRACTURE [None]
